FAERS Safety Report 18789053 (Version 1)
Quarter: 2021Q1

REPORT INFORMATION
  Report Type: Spontaneous
  Country: US (occurrence: US)
  Receive Date: 20210126
  Receipt Date: 20210126
  Transmission Date: 20210419
  Serious: Yes (Hospitalization)
  Sender: FDA-Public Use
  Company Number: None

PATIENT
  Age: 25 Year
  Sex: Female
  Weight: 53.8 kg

DRUGS (1)
  1. PRIVIGEN [Suspect]
     Active Substance: HUMAN IMMUNOGLOBULIN G
     Route: 041

REACTIONS (5)
  - Vomiting [None]
  - Meningitis aseptic [None]
  - Nausea [None]
  - Pain [None]
  - Dehydration [None]

NARRATIVE: CASE EVENT DATE: 20201215
